FAERS Safety Report 17124422 (Version 1)
Quarter: 2019Q4

REPORT INFORMATION
  Report Type: Spontaneous
  Country: US (occurrence: US)
  Receive Date: 20191206
  Receipt Date: 20191206
  Transmission Date: 20200122
  Serious: No
  Sender: FDA-Public Use
  Company Number: US-NOVOPROD-642492

PATIENT
  Age: 67 Year
  Sex: Female

DRUGS (1)
  1. NOVOLIN 70/30 [Suspect]
     Active Substance: INSULIN HUMAN
     Indication: TYPE 2 DIABETES MELLITUS
     Dosage: UNK (TWICE DAILY)
     Route: 065
     Dates: start: 2017

REACTIONS (3)
  - Food poisoning [Recovered/Resolved]
  - Product odour abnormal [Unknown]
  - Product tampering [Unknown]

NARRATIVE: CASE EVENT DATE: 2018
